APPROVED DRUG PRODUCT: AMINOSYN II 15% IN PLASTIC CONTAINER
Active Ingredient: AMINO ACIDS
Strength: 15% (15GM/100ML)
Dosage Form/Route: INJECTABLE;INJECTION
Application: N020041 | Product #001
Applicant: OTSUKA ICU MEDICAL LLC
Approved: Dec 19, 1991 | RLD: No | RS: No | Type: RX